FAERS Safety Report 18376292 (Version 1)
Quarter: 2020Q4

REPORT INFORMATION
  Report Type: Spontaneous
  Country: US (occurrence: US)
  Receive Date: 20201009
  Receipt Date: 20201009
  Transmission Date: 20210114
  Serious: No
  Sender: FDA-Public Use
  Company Number: None

PATIENT
  Age: 75 Year
  Sex: Female

DRUGS (1)
  1. TECFIDERA [Suspect]
     Active Substance: DIMETHYL FUMARATE
     Indication: MULTIPLE SCLEROSIS
     Route: 048
     Dates: start: 20200923, end: 20201005

REACTIONS (6)
  - Dizziness [None]
  - Therapy cessation [None]
  - Dehydration [None]
  - Rash [None]
  - Flushing [None]
  - Atrial fibrillation [None]

NARRATIVE: CASE EVENT DATE: 20201006
